FAERS Safety Report 6625841-1 (Version None)
Quarter: 2010Q1

REPORT INFORMATION
  Report Type: 
  Country: None (occurrence: None)
  Receive Date: 20100310
  Receipt Date: 20100304
  Transmission Date: 20100710
  Serious: Yes (Death, Life-Threatening, Hospitalization, Other)
  Sender: FDA-Public Use
  Company Number: US-ELI_LILLY_AND_COMPANY-US201003001705

PATIENT
  Age: 65 Year
  Sex: Male

DRUGS (5)
  1. HUMALOG [Suspect]
     Dates: start: 20060101
  2. HUMALOG [Suspect]
     Indication: DIABETES MELLITUS
     Dosage: 10 U, 2/D
  3. HUMALOG [Suspect]
     Dosage: 10 U, 2/D
  4. LANTUS [Concomitant]
     Dosage: 100 U, EACH EVENING
  5. METFORMIN HYDROCHLORIDE [Concomitant]
     Dosage: 1500 D/F, DAILY (1/D)

REACTIONS (13)
  - APPARENT DEATH [None]
  - BLOOD GLUCOSE DECREASED [None]
  - BLOOD GLUCOSE INCREASED [None]
  - CARDIAC ARREST [None]
  - DRUG PRESCRIBING ERROR [None]
  - DYSPNOEA [None]
  - HYPERHIDROSIS [None]
  - INCORRECT DRUG DOSAGE FORM ADMINISTERED [None]
  - MESOTHELIOMA [None]
  - MYOCARDIAL INFARCTION [None]
  - NERVOUSNESS [None]
  - SURGERY [None]
  - VISUAL ACUITY REDUCED [None]
